FAERS Safety Report 5056524-X (Version None)
Quarter: 2006Q3

REPORT INFORMATION
  Report Type: 
  Country: None (occurrence: None)
  Receive Date: 20060720
  Receipt Date: 20060626
  Transmission Date: 20061208
  Serious: Yes (Death, Congenital Anomaly)
  Sender: FDA-Public Use
  Company Number: GB-ABBOTT-06P-167-0337013-00

PATIENT
  Sex: Female
  Weight: 0.13 kg

DRUGS (2)
  1. KALETRA [Suspect]
     Indication: DRUG EXPOSURE DURING PREGNANCY
  2. LAMIVUDINE AND ZIDOVUDINE [Suspect]
     Indication: DRUG EXPOSURE DURING PREGNANCY

REACTIONS (4)
  - DOUBLE OUTLET RIGHT VENTRICLE [None]
  - DRUG EXPOSURE DURING PREGNANCY [None]
  - STILLBIRTH [None]
  - VENTRICULAR SEPTAL DEFECT [None]
